FAERS Safety Report 10453871 (Version 1)
Quarter: 2014Q3

REPORT INFORMATION
  Report Type: Spontaneous
  Country: US (occurrence: US)
  Receive Date: 20140915
  Receipt Date: 20140915
  Transmission Date: 20150326
  Serious: No
  Sender: FDA-Public Use
  Company Number: US-BRISTOL-MYERS SQUIBB COMPANY-20603544

PATIENT
  Age: 85 Year
  Sex: Female

DRUGS (6)
  1. MAGNESIUM [Concomitant]
     Active Substance: MAGNESIUM
  2. ALPRAZOLAM. [Concomitant]
     Active Substance: ALPRAZOLAM
  3. DILTIAZEM HCL [Concomitant]
     Active Substance: DILTIAZEM HYDROCHLORIDE
  4. ELIQUIS [Suspect]
     Active Substance: APIXABAN
  5. COZAAR [Concomitant]
     Active Substance: LOSARTAN POTASSIUM
  6. PRANDIN [Concomitant]
     Active Substance: REPAGLINIDE

REACTIONS (1)
  - Tooth fracture [Unknown]
